FAERS Safety Report 18573527 (Version 1)
Quarter: 2020Q4

REPORT INFORMATION
  Report Type: Spontaneous
  Country: US (occurrence: US)
  Receive Date: 20201203
  Receipt Date: 20201203
  Transmission Date: 20210114
  Serious: No
  Sender: FDA-Public Use
  Company Number: US-ASTRAZENECA-2020SF51923

PATIENT
  Sex: Male

DRUGS (1)
  1. ROSUVASTATIN. [Suspect]
     Active Substance: ROSUVASTATIN
     Route: 048
     Dates: start: 20200125, end: 202010

REACTIONS (3)
  - Blood creatine increased [Unknown]
  - Blood urea increased [Unknown]
  - Proteinuria [Unknown]

NARRATIVE: CASE EVENT DATE: 202010
